FAERS Safety Report 5644919-2 (Version None)
Quarter: 2008Q1

REPORT INFORMATION
  Report Type: 
  Country: None (occurrence: None)
  Receive Date: 20080229
  Receipt Date: 20071107
  Transmission Date: 20080703
  Serious: No
  Sender: FDA-Public Use
  Company Number: A0689577A

PATIENT
  Age: 30 Year
  Sex: Female
  Weight: 75.9 kg

DRUGS (1)
  1. VALTREX [Suspect]
     Indication: GENITAL HERPES
     Dosage: 500MG PER DAY
     Route: 048
     Dates: start: 20071001

REACTIONS (3)
  - DRUG EXPOSURE DURING PREGNANCY [None]
  - GENITAL HERPES [None]
  - INAPPROPRIATE SCHEDULE OF DRUG ADMINISTRATION [None]
